FAERS Safety Report 21140675 (Version 2)
Quarter: 2022Q3

REPORT INFORMATION
  Report Type: Report from Study
  Country: CO (occurrence: CO)
  Receive Date: 20220728
  Receipt Date: 20220928
  Transmission Date: 20221027
  Serious: Yes (Hospitalization, Other)
  Sender: FDA-Public Use
  Company Number: CO-ABBVIE-22K-036-4484345-00

PATIENT
  Sex: Male
  Weight: 56 kg

DRUGS (2)
  1. HUMIRA [Suspect]
     Active Substance: ADALIMUMAB
     Indication: Ankylosing spondylitis
     Route: 058
     Dates: start: 20130705
  2. HUMIRA [Suspect]
     Active Substance: ADALIMUMAB

REACTIONS (11)
  - Malnutrition [Recovering/Resolving]
  - Immune system disorder [Recovering/Resolving]
  - Malnutrition [Recovering/Resolving]
  - Eating disorder [Recovering/Resolving]
  - Asthenia [Recovering/Resolving]
  - Pneumonia [Recovered/Resolved]
  - Influenza [Recovering/Resolving]
  - Influenza like illness [Recovering/Resolving]
  - Pain [Unknown]
  - Cough [Recovering/Resolving]
  - Tooth loss [Recovering/Resolving]

NARRATIVE: CASE EVENT DATE: 20210101
